FAERS Safety Report 7277471-9 (Version None)
Quarter: 2011Q1

REPORT INFORMATION
  Report Type: 
  Country: None (occurrence: None)
  Receive Date: 20110207
  Receipt Date: 20110131
  Transmission Date: 20110831
  Serious: Yes (Hospitalization)
  Sender: FDA-Public Use
  Company Number: JP-BRISTOL-MYERS SQUIBB COMPANY-15530546

PATIENT

DRUGS (2)
  1. INSULIN [Concomitant]
     Dosage: INJECTION
  2. ABILIFY [Suspect]
     Route: 048

REACTIONS (2)
  - DIABETIC COMA [None]
  - BLOOD GLUCOSE INCREASED [None]
